FAERS Safety Report 11820092 (Version 1)
Quarter: 2015Q4

REPORT INFORMATION
  Report Type: Spontaneous
  Country: US (occurrence: US)
  Receive Date: 20151210
  Receipt Date: 20151210
  Transmission Date: 20160305
  Serious: No
  Sender: FDA-Public Use
  Company Number: US-HOSPIRA-2759886

PATIENT
  Age: 75 Year
  Sex: Female
  Weight: 57 kg

DRUGS (4)
  1. NORADRENALINE TARTRATE [Suspect]
     Active Substance: NOREPINEPHRINE BITARTRATE
     Indication: HYPOTENSION
     Dosage: 7 MCG/MIN (6.6 ML/HR)
     Route: 041
     Dates: start: 20150203
  2. NORADRENALINE TARTRATE [Suspect]
     Active Substance: NOREPINEPHRINE BITARTRATE
     Indication: HAEMODYNAMIC INSTABILITY
     Dosage: 5 MCG/MIN (4.7 ML/HR)
     Route: 041
     Dates: start: 20150125, end: 20150204
  3. NORADRENALINE TARTRATE [Suspect]
     Active Substance: NOREPINEPHRINE BITARTRATE
     Indication: HYPOTENSION
     Dosage: 5 MCG/MIN (4.7 ML/HR)
     Route: 041
     Dates: start: 20150125, end: 20150204
  4. NORADRENALINE TARTRATE [Suspect]
     Active Substance: NOREPINEPHRINE BITARTRATE
     Indication: HAEMODYNAMIC INSTABILITY
     Dosage: 7 MCG/MIN (6.6 ML/HR)
     Route: 041
     Dates: start: 20150203

REACTIONS (4)
  - Ventricular extrasystoles [Recovered/Resolved with Sequelae]
  - Incorrect drug administration rate [Recovered/Resolved with Sequelae]
  - Heart rate increased [Recovered/Resolved with Sequelae]
  - Blood pressure increased [Recovered/Resolved with Sequelae]

NARRATIVE: CASE EVENT DATE: 20150203
